FAERS Safety Report 13924175 (Version 1)
Quarter: 2017Q3

REPORT INFORMATION
  Report Type: Spontaneous
  Country: CA (occurrence: CA)
  Receive Date: 20170831
  Receipt Date: 20170831
  Transmission Date: 20171127
  Serious: Yes (Other)
  Sender: FDA-Public Use
  Company Number: CA-TEVA-802153ACC

PATIENT
  Sex: Male
  Weight: 100 kg

DRUGS (6)
  1. COVERSYL [Concomitant]
     Active Substance: PERINDOPRIL
  2. GLICLAZIDE [Concomitant]
     Active Substance: GLICLAZIDE
  3. FLOVENT [Concomitant]
     Active Substance: FLUTICASONE PROPIONATE
  4. CIALIS [Concomitant]
     Active Substance: TADALAFIL
  5. ACT METFORMIN [Suspect]
     Active Substance: METFORMIN HYDROCHLORIDE
     Indication: DIABETES MELLITUS
     Dosage: 5 DOSAGE FORMS DAILY;
  6. APO-SALVENT INHALER [Concomitant]
     Active Substance: ALBUTEROL

REACTIONS (4)
  - Cardiac flutter [Recovered/Resolved]
  - Product substitution issue [Recovered/Resolved]
  - Diarrhoea [Recovered/Resolved]
  - Dizziness [Recovered/Resolved]
